FAERS Safety Report 23485362 (Version 1)
Quarter: 2024Q1

REPORT INFORMATION
  Report Type: Spontaneous
  Country: US (occurrence: US)
  Receive Date: 20240206
  Receipt Date: 20240206
  Transmission Date: 20240409
  Serious: No
  Sender: FDA-Public Use
  Company Number: US-SA-SAC20240127000213

PATIENT
  Sex: Female

DRUGS (6)
  1. DUPIXENT [Suspect]
     Active Substance: DUPILUMAB
     Indication: Dermatitis atopic
     Dosage: 300 MG, QOW
     Route: 058
     Dates: start: 20211123
  2. ESTRADIOL [Concomitant]
     Active Substance: ESTRADIOL
  3. MUPIROCIN [Concomitant]
     Active Substance: MUPIROCIN
  4. PROGESTERONE [Concomitant]
     Active Substance: PROGESTERONE
  5. DEXAMETHASONE PHOSPHATE [Concomitant]
     Active Substance: DEXAMETHASONE PHOSPHATE
  6. ZYRTEC [Concomitant]
     Active Substance: CETIRIZINE HYDROCHLORIDE

REACTIONS (3)
  - Discomfort [Recovered/Resolved]
  - Rash [Recovered/Resolved]
  - Dermatitis atopic [Recovered/Resolved]
